FAERS Safety Report 5958650-7 (Version None)
Quarter: 2008Q4

REPORT INFORMATION
  Report Type: 
  Country: None (occurrence: None)
  Receive Date: 20081119
  Receipt Date: 20081107
  Transmission Date: 20090506
  Serious: Yes (Other)
  Sender: FDA-Public Use
  Company Number: JP-PFIZER INC-2008095195

PATIENT
  Age: 69 Year
  Sex: Male

DRUGS (3)
  1. MYCOBUTIN [Suspect]
     Route: 048
  2. CLARITHROMYCIN [Concomitant]
     Route: 048
  3. ETHAMBUTOL HYDROCHLORIDE [Concomitant]
     Route: 048

REACTIONS (1)
  - INTERSTITIAL LUNG DISEASE [None]
